FAERS Safety Report 5448319-X (Version None)
Quarter: 2007Q3

REPORT INFORMATION
  Report Type: 
  Country: None (occurrence: None)
  Receive Date: 20070906
  Receipt Date: 20070817
  Transmission Date: 20080115
  Serious: Yes (Hospitalization)
  Sender: FDA-Public Use
  Company Number: S07-JPN-03322-01

PATIENT
  Age: 42 Year
  Sex: Female
  Weight: 48.2 kg

DRUGS (24)
  1. ESCITALOPRAM OXALATE [Suspect]
     Indication: MAJOR DEPRESSION
     Dosage: 20 MG QD PO
     Route: 048
     Dates: start: 20070327, end: 20070409
  2. ESCITALOPRAM OXALATE [Suspect]
     Indication: MAJOR DEPRESSION
     Dosage: 10 MG QD PO
     Dates: start: 20070410, end: 20070521
  3. ESCITALOPRAM OXALATE [Suspect]
     Indication: MAJOR DEPRESSION
     Dosage: 20 MG QD PO
     Route: 048
     Dates: start: 20070522, end: 20070611
  4. ESCITALOPRAM OXALATE [Suspect]
     Indication: MAJOR DEPRESSION
     Dosage: 20 MG QD PO
     Route: 048
     Dates: start: 20070615, end: 20070711
  5. ESCITALOPRAM OXALATE [Suspect]
     Indication: MAJOR DEPRESSION
     Dosage: 10 MG QD PO
     Route: 048
     Dates: start: 20070130, end: 20070326
  6. LASIX [Suspect]
     Indication: HYPERKALAEMIA
     Dosage: 20 MG QD PO
     Route: 048
     Dates: start: 20060901
  7. LASIX [Suspect]
     Indication: OEDEMA PERIPHERAL
     Dosage: 20 MG QD PO
     Route: 048
     Dates: start: 20060901
  8. LASIX [Suspect]
     Indication: HYPERKALAEMIA
     Dosage: 20 MG QD PO
     Route: 048
     Dates: start: 20070130, end: 20070711
  9. LASIX [Suspect]
     Indication: OEDEMA PERIPHERAL
     Dosage: 20 MG QD PO
     Route: 048
     Dates: start: 20070130, end: 20070711
  10. LASIX [Suspect]
     Indication: HYPERKALAEMIA
     Dosage: 20 MG QD PO
     Route: 048
     Dates: start: 20070718, end: 20070731
  11. LASIX [Suspect]
     Indication: OEDEMA PERIPHERAL
     Dosage: 20 MG QD PO
     Route: 048
     Dates: start: 20070718, end: 20070731
  12. LASIX [Suspect]
     Indication: HYPERKALAEMIA
     Dosage: 40 MG QD PO
     Route: 048
     Dates: start: 20070801, end: 20070806
  13. LASIX [Suspect]
     Indication: OEDEMA PERIPHERAL
     Dosage: 40 MG QD PO
     Route: 048
     Dates: start: 20070801, end: 20070806
  14. ALCOHOL [Suspect]
  15. ALPRAZOLAM [Concomitant]
  16. ROHYPNOL              (FLUNITRAZEPAM) [Concomitant]
  17. GASMOTIN            (MOSAPRIDE CITRATE) [Concomitant]
  18. FAMOTIDINE [Concomitant]
  19. LEVOTHYROXINE SODIUM [Concomitant]
  20. ALLOPURINOL [Concomitant]
  21. BISACODYL [Concomitant]
  22. NAUZELIN               (DOMPERIDONE) [Concomitant]
  23. ALESION           (EPINASTINE HYDROCHLORIDE) [Concomitant]
  24. MEDICON           (DEXTROMETHORPHAN HYDROBROMIDE) [Concomitant]

REACTIONS (12)
  - ATRIOVENTRICULAR BLOCK [None]
  - BLOOD POTASSIUM DECREASED [None]
  - BLOOD SODIUM DECREASED [None]
  - ELECTROCARDIOGRAM ST-T CHANGE [None]
  - ELECTROLYTE IMBALANCE [None]
  - HEPATITIS ACUTE [None]
  - HEPATITIS ALCOHOLIC [None]
  - MALAISE [None]
  - OEDEMA PERIPHERAL [None]
  - SOMNOLENCE [None]
  - STOMATITIS [None]
  - VOMITING [None]
